FAERS Safety Report 8396082-5 (Version None)
Quarter: 2012Q2

REPORT INFORMATION
  Report Type: 
  Country: None (occurrence: None)
  Receive Date: 20120530
  Receipt Date: 20120521
  Transmission Date: 20120825
  Serious: Yes (Death)
  Sender: FDA-Public Use
  Company Number: US-ROCHE-1047526

PATIENT
  Sex: Female
  Weight: 15.95 kg

DRUGS (10)
  1. SOMATROPIN [Suspect]
     Indication: RENAL FAILURE
     Route: 058
  2. POLY-VI-SOL [Concomitant]
     Route: 048
     Dates: start: 20110812
  3. ZANTAC [Concomitant]
     Dates: start: 20100730
  4. SENSIPAR [Concomitant]
     Route: 048
     Dates: start: 20110207
  5. AMLODIPINE BESYLATE [Concomitant]
     Indication: HYPERTENSION
     Route: 048
     Dates: start: 20120216
  6. CALCIUM CARBONATE [Concomitant]
     Dosage: ROUTE G TUBE
     Dates: start: 20100730
  7. BENADRYL [Concomitant]
     Indication: PRURITUS
     Route: 048
  8. SOMATROPIN [Suspect]
     Indication: DIALYSIS
  9. CALCIUM CARBONATE [Concomitant]
     Dosage: 1250 MG SNACKS
     Route: 048
     Dates: start: 20100730
  10. RENVELA [Concomitant]
     Dates: start: 20100810

REACTIONS (1)
  - CALCIFICATION METASTATIC [None]
